FAERS Safety Report 5011829-3 (Version None)
Quarter: 2006Q2

REPORT INFORMATION
  Report Type: 
  Country: None (occurrence: None)
  Receive Date: 20060524
  Receipt Date: 20060524
  Transmission Date: 20061013
  Serious: No
  Sender: FDA-Public Use
  Company Number: None

PATIENT
  Age: 88 Year
  Sex: Female

DRUGS (2)
  1. HEPARIN [Suspect]
  2. RETEVASE [Suspect]
     Indication: PULMONARY EMBOLISM
     Dosage: 12 ML/HR X 2 LINES

REACTIONS (8)
  - CHEST DISCOMFORT [None]
  - DEEP VEIN THROMBOSIS [None]
  - DYSPNOEA [None]
  - HAEMATOCRIT DECREASED [None]
  - HYPOTENSION [None]
  - PULMONARY EMBOLISM [None]
  - RETROPERITONEAL HAEMATOMA [None]
  - SHOCK [None]
